FAERS Safety Report 8763880 (Version 2)
Quarter: 2012Q4

REPORT INFORMATION
  Report Type: 
  Country: NL (occurrence: NL)
  Receive Date: 20120831
  Receipt Date: 20120913
  Transmission Date: 20130627
  Serious: Yes (Other)
  Sender: FDA-Public Use
  Company Number: PHHY2012NL075083

PATIENT
  Age: 77 Year
  Sex: Female
  Weight: 68 kg

DRUGS (9)
  1. SANDOSTATIN LAR [Suspect]
     Indication: ACROMEGALY
     Dosage: 30 mg,
     Route: 030
     Dates: start: 2010
  2. SANDOSTATIN LAR [Suspect]
     Dosage: UNK UKN, UNK
  3. METOPROLOL [Concomitant]
     Dosage: 150 mg, QD
  4. SIMVASTATIN [Concomitant]
  5. DOSTINEX [Concomitant]
  6. SOMAVERT [Concomitant]
  7. PEGVISOMANT [Concomitant]
     Dosage: 40 mg twice weekly
  8. CABERGOLINE [Concomitant]
     Dosage: 0.5 mg, QD
  9. EXFORGE [Concomitant]

REACTIONS (2)
  - Transient ischaemic attack [Not Recovered/Not Resolved]
  - Hypoaesthesia [Not Recovered/Not Resolved]
